FAERS Safety Report 25280874 (Version 3)
Quarter: 2025Q2

REPORT INFORMATION
  Report Type: Report from Study
  Country: US (occurrence: US)
  Receive Date: 20250508
  Receipt Date: 20250529
  Transmission Date: 20250717
  Serious: Yes (Hospitalization)
  Sender: ROCHE
  Company Number: US-ROCHE-10000278503

PATIENT
  Age: 38 Day
  Sex: Male
  Weight: 2.76 kg

DRUGS (2)
  1. EVRYSDI [Suspect]
     Active Substance: RISDIPLAM
     Indication: Spinal muscular atrophy
     Dosage: STRENGTH: 0.75 MG / 1 ML
     Route: 048
     Dates: start: 20250408
  2. EVRYSDI [Suspect]
     Active Substance: RISDIPLAM
     Dosage: STRENGTH: 0.75 MG / 1 ML
     Route: 048
     Dates: start: 20250408

REACTIONS (4)
  - Cough [Recovered/Resolved]
  - Nasopharyngitis [Recovered/Resolved]
  - Weight decreased [Recovering/Resolving]
  - Upper respiratory tract infection [Unknown]

NARRATIVE: CASE EVENT DATE: 20250502
